FAERS Safety Report 7012271-6 (Version None)
Quarter: 2010Q3

REPORT INFORMATION
  Report Type: 
  Country: None (occurrence: None)
  Receive Date: 20100910
  Receipt Date: 20091021
  Transmission Date: 20110219
  Serious: Yes (Other)
  Sender: FDA-Public Use
  Company Number: 1000009183

PATIENT
  Age: 10 Year
  Sex: Female
  Weight: 34.7455 kg

DRUGS (2)
  1. CELEXA [Suspect]
     Indication: MIGRAINE
     Dosage: 5 MG (5 MG, 1 IN 1 D),ORAL
     Route: 048
     Dates: start: 20090813, end: 20090817
  2. LAMICTAL [Suspect]
     Indication: CONVULSION
     Dosage: 25 MG (25 MG, 1 IN 1 D),ORAL
     Route: 048
     Dates: start: 20090729, end: 20090817

REACTIONS (2)
  - CONVULSION [None]
  - SUICIDAL IDEATION [None]
